FAERS Safety Report 7335708-1 (Version None)
Quarter: 2011Q1

REPORT INFORMATION
  Report Type: 
  Country: None (occurrence: None)
  Receive Date: 20110307
  Receipt Date: 20110228
  Transmission Date: 20110831
  Serious: Yes (Other)
  Sender: FDA-Public Use
  Company Number: A0916803A

PATIENT

DRUGS (3)
  1. NEVIRAPINE [Suspect]
     Indication: ANTIVIRAL TREATMENT
     Route: 048
  2. EPIVIR [Suspect]
     Indication: ANTIVIRAL TREATMENT
     Route: 048
  3. ZERIT [Suspect]
     Indication: ANTIVIRAL TREATMENT
     Route: 048

REACTIONS (4)
  - MITRAL VALVE STENOSIS [None]
  - PULMONARY VALVE STENOSIS [None]
  - DRUG EXPOSURE DURING PREGNANCY [None]
  - ATRIAL SEPTAL DEFECT [None]
